FAERS Safety Report 5441582-0 (Version None)
Quarter: 2007Q3

REPORT INFORMATION
  Report Type: 
  Country: None (occurrence: None)
  Receive Date: 20070830
  Receipt Date: 20070830
  Transmission Date: 20080115
  Serious: Yes (Hospitalization)
  Sender: FDA-Public Use
  Company Number: None

PATIENT
  Sex: Male
  Weight: 79 kg

DRUGS (1)
  1. HIGH - DOSE IL-2 [Suspect]
     Indication: MALIGNANT MELANOMA
     Dosage: 103.8 ML IV
     Route: 042
     Dates: start: 20070813, end: 20070817

REACTIONS (2)
  - DISEASE PROGRESSION [None]
  - INTESTINAL OBSTRUCTION [None]
